FAERS Safety Report 4508788-6 (Version None)
Quarter: 2004Q4

REPORT INFORMATION
  Report Type: 
  Country: None (occurrence: None)
  Receive Date: 20041123
  Receipt Date: 20040809
  Transmission Date: 20050328
  Serious: No
  Sender: FDA-Public Use
  Company Number: US-GLAXOSMITHKLINE-A0521539A

PATIENT
  Age: 47 Year
  Sex: Female

DRUGS (2)
  1. WELLBUTRIN SR [Suspect]
     Indication: DEPRESSION
     Dosage: 200MG PER DAY
     Route: 048
     Dates: start: 20040212
  2. NO CONCURRENT MEDICATION [Concomitant]

REACTIONS (2)
  - NAUSEA [None]
  - STOMACH DISCOMFORT [None]
